FAERS Safety Report 10416371 (Version 1)
Quarter: 2014Q3

REPORT INFORMATION
  Report Type: Spontaneous
  Country: US (occurrence: US)
  Receive Date: 20140828
  Receipt Date: 20140828
  Transmission Date: 20150326
  Serious: Yes (Hospitalization)
  Sender: FDA-Public Use
  Company Number: US-JNJFOC-20140816340

PATIENT
  Age: 74 Year
  Sex: Female
  Weight: 61.24 kg

DRUGS (3)
  1. WARFARIN [Suspect]
     Active Substance: WARFARIN
     Indication: ATRIAL FIBRILLATION
     Route: 065
     Dates: end: 201306
  2. NIZORAL [Suspect]
     Active Substance: KETOCONAZOLE
     Route: 061
  3. NIZORAL [Suspect]
     Active Substance: KETOCONAZOLE
     Indication: SEBORRHOEIC DERMATITIS
     Route: 061
     Dates: end: 201306

REACTIONS (3)
  - Atrial fibrillation [Not Recovered/Not Resolved]
  - Coronary artery bypass [Unknown]
  - Alopecia [Not Recovered/Not Resolved]

NARRATIVE: CASE EVENT DATE: 201101
